FAERS Safety Report 16373713 (Version 8)
Quarter: 2020Q3

REPORT INFORMATION
  Report Type: Report from Study
  Country: US (occurrence: US)
  Receive Date: 20190530
  Receipt Date: 20200917
  Transmission Date: 20201102
  Serious: Yes (Hospitalization)
  Sender: FDA-Public Use
  Company Number: US-SA-2019SA147029

PATIENT

DRUGS (4)
  1. POTASSIUM CHLORIDE. [Concomitant]
     Active Substance: POTASSIUM CHLORIDE
     Dosage: 40 MEQ, QD
  2. PLAVIX [Concomitant]
     Active Substance: CLOPIDOGREL BISULFATE
     Dosage: UNK
  3. ASPIRIN [ACETYLSALICYLIC ACID] [Concomitant]
     Active Substance: ASPIRIN
     Dosage: UNK
  4. DUPILUMAB [Suspect]
     Active Substance: DUPILUMAB
     Indication: DERMATITIS ATOPIC
     Dosage: 300 MG, QOW
     Route: 058
     Dates: start: 20181204, end: 20200825

REACTIONS (17)
  - Dysphonia [Unknown]
  - Injection site bruising [Unknown]
  - Aphonia [Unknown]
  - Off label use [Unknown]
  - Skin swelling [Unknown]
  - Vomiting [Unknown]
  - Laryngitis [Unknown]
  - Product dose omission issue [Unknown]
  - Liver disorder [Not Recovered/Not Resolved]
  - Hypersensitivity [Unknown]
  - Catheterisation cardiac [Unknown]
  - Dyspnoea [Unknown]
  - Contusion [Unknown]
  - Scratch [Unknown]
  - Fall [Unknown]
  - Blood iron decreased [Not Recovered/Not Resolved]
  - Fatigue [Unknown]

NARRATIVE: CASE EVENT DATE: 2020
